FAERS Safety Report 5102181-3 (Version None)
Quarter: 2006Q3

REPORT INFORMATION
  Report Type: 
  Country: None (occurrence: None)
  Receive Date: 20060908
  Receipt Date: 20060828
  Transmission Date: 20061208
  Serious: Yes (Hospitalization)
  Sender: FDA-Public Use
  Company Number: 2006BI008543

PATIENT
  Age: 48 Year
  Sex: Female

DRUGS (9)
  1. AVONEX [Suspect]
     Indication: MULTIPLE SCLEROSIS
     Dosage: 30 UG;QW;IM
     Route: 030
     Dates: start: 19990701
  2. AVONEX [Suspect]
     Indication: MULTIPLE SCLEROSIS
     Dosage: 30 UG;QW;IM
     Route: 030
  3. FAMPRIDINE SR [Concomitant]
  4. AMANTADINE HCL [Concomitant]
  5. LOVASTATIN [Concomitant]
  6. OXYBUTRIN [Concomitant]
  7. ZOLOFT [Concomitant]
  8. ACETAMINOPHEN [Concomitant]
  9. LAMICTAL [Concomitant]

REACTIONS (7)
  - ABDOMINAL PAIN UPPER [None]
  - DEHYDRATION [None]
  - ENTERITIS [None]
  - INFLUENZA [None]
  - URINARY TRACT INFECTION [None]
  - VOMITING [None]
  - WHITE BLOOD CELL COUNT INCREASED [None]
